FAERS Safety Report 9466570 (Version 4)
Quarter: 2017Q4

REPORT INFORMATION
  Report Type: Report from Study
  Country: US (occurrence: US)
  Receive Date: 20130820
  Receipt Date: 20171009
  Transmission Date: 20180321
  Serious: Yes (Death, Life-Threatening, Hospitalization, Other)
  Sender: FDA-Public Use
  Company Number: US-ACTELION-A-US2013-87347

PATIENT
  Age: 65 Year
  Sex: Female
  Weight: 135.15 kg

DRUGS (4)
  1. SILDENAFIL. [Concomitant]
     Active Substance: SILDENAFIL
     Dosage: 20 MG, TID
     Dates: start: 201209, end: 201702
  2. VENTAVIS [Suspect]
     Active Substance: ILOPROST
     Indication: PULMONARY ARTERIAL HYPERTENSION
     Dosage: 5 MCG, 6-9X PER DAY
     Route: 055
     Dates: start: 2013, end: 201702
  3. SILDENAFIL. [Concomitant]
     Active Substance: SILDENAFIL
     Dosage: 20 MG, TID
     Dates: start: 20170801
  4. VENTAVIS [Suspect]
     Active Substance: ILOPROST
     Dosage: UNK, 6-9X PER DAY
     Route: 055
     Dates: start: 20170729

REACTIONS (16)
  - Cardiogenic shock [Fatal]
  - Drug dose omission [Unknown]
  - Sepsis [Fatal]
  - Pickwickian syndrome [Fatal]
  - Sleep apnoea syndrome [Fatal]
  - Blood glucose increased [Unknown]
  - Pulmonary arterial hypertension [Fatal]
  - Chronic obstructive pulmonary disease [Fatal]
  - Hypercapnia [Not Recovered/Not Resolved]
  - Escherichia urinary tract infection [Fatal]
  - Disease progression [Fatal]
  - Dyspnoea [Not Recovered/Not Resolved]
  - Pyrexia [Not Recovered/Not Resolved]
  - Pneumonia [Not Recovered/Not Resolved]
  - Oropharyngeal pain [Unknown]
  - Cough [Unknown]
